FAERS Safety Report 4317636-9 (Version None)
Quarter: 2004Q1

REPORT INFORMATION
  Report Type: 
  Country: None (occurrence: None)
  Receive Date: 20040315
  Receipt Date: 20040220
  Transmission Date: 20041129
  Serious: Yes (Disabling)
  Sender: FDA-Public Use
  Company Number: US-GLAXOSMITHKLINE-A0499245A

PATIENT
  Age: 82 Year
  Sex: Female
  Weight: 80.9 kg

DRUGS (9)
  1. AVANDIA [Suspect]
     Route: 048
     Dates: start: 20040212, end: 20040214
  2. PREVACID [Concomitant]
  3. PLAVIX [Concomitant]
  4. GLUCOTROL [Concomitant]
  5. FOSAMAX [Concomitant]
  6. ELAVIL [Concomitant]
  7. PROCARDIA [Concomitant]
  8. EVISTA [Concomitant]
  9. ALDACTONE [Concomitant]

REACTIONS (2)
  - ARTHRALGIA [None]
  - MYALGIA [None]
